FAERS Safety Report 8425966-4 (Version None)
Quarter: 2012Q2

REPORT INFORMATION
  Report Type: 
  Country: None (occurrence: None)
  Receive Date: 20120611
  Receipt Date: 20120531
  Transmission Date: 20120825
  Serious: Yes (Other)
  Sender: FDA-Public Use
  Company Number: GB-SANOFI-AVENTIS-2012SA040440

PATIENT
  Age: 59 Year
  Sex: Female

DRUGS (6)
  1. ANTIPSYCHOTICS [Interacting]
     Dosage: RECEIVED DEPOT
     Route: 065
  2. ETHAMBUTOL HYDROCHLORIDE [Interacting]
     Indication: TUBERCULOSIS LIVER
     Route: 065
  3. ISONIAZID [Suspect]
     Indication: TUBERCULOSIS LIVER
     Route: 065
  4. RIFAMPICIN [Interacting]
     Indication: TUBERCULOSIS LIVER
     Route: 065
  5. TRICYCLIC ANTIDEPRESSANTS [Interacting]
     Route: 065
  6. PYRAZINAMIDE [Concomitant]
     Indication: TUBERCULOSIS LIVER

REACTIONS (2)
  - DRUG INTERACTION [None]
  - PSYCHOTIC DISORDER [None]
